FAERS Safety Report 24793096 (Version 1)
Quarter: 2024Q4

REPORT INFORMATION
  Report Type: Spontaneous
  Country: IT (occurrence: IT)
  Receive Date: 20241231
  Receipt Date: 20241231
  Transmission Date: 20250114
  Serious: Yes (Life-Threatening, Hospitalization, Other)
  Sender: AUROBINDO
  Company Number: IT-ABBVIE-6044817

PATIENT
  Age: 63 Year
  Sex: Male

DRUGS (13)
  1. AZACITIDINE [Suspect]
     Active Substance: AZACITIDINE
     Indication: Acute myeloid leukaemia
     Dosage: 75 MILLIGRAM/SQ. METER (75 MG/M2 BSA)
     Route: 065
     Dates: start: 20241114, end: 20241120
  2. VENETOCLAX [Suspect]
     Active Substance: VENETOCLAX
     Indication: Acute myeloid leukaemia
     Dosage: 100 MILLIGRAM (RAMP UP DOSE)
     Route: 048
     Dates: start: 20241114, end: 20241114
  3. VENETOCLAX [Suspect]
     Active Substance: VENETOCLAX
     Dosage: 200 MILLIGRAM (RAMP UP DOSE)
     Route: 048
     Dates: start: 20241115, end: 20241115
  4. VENETOCLAX [Suspect]
     Active Substance: VENETOCLAX
     Dosage: 400 MILLIGRAM (REASON FOR DISCONTINUATION:OTHER)
     Route: 048
     Dates: start: 20241115, end: 20241204
  5. CARBAMAZEPINE [Concomitant]
     Active Substance: CARBAMAZEPINE
     Indication: Temporal lobe epilepsy
     Dosage: 200 MILLIGRAM, ONCE A DAY
     Route: 048
     Dates: start: 1975, end: 20241114
  6. LACOSAMIDE [Concomitant]
     Active Substance: LACOSAMIDE
     Indication: Temporal lobe epilepsy
     Dosage: 150 MILLIGRAM, ONCE A DAY
     Route: 048
     Dates: start: 202409
  7. ALFUZOSIN [Concomitant]
     Active Substance: ALFUZOSIN
     Indication: Benign prostatic hyperplasia
     Dosage: 10 MILLIGRAM, ONCE A DAY
     Route: 048
     Dates: start: 20241114
  8. PANTOPRAZOLE [Concomitant]
     Active Substance: PANTOPRAZOLE
     Indication: Prophylaxis against gastrointestinal ulcer
     Dosage: 40 MILLIGRAM, ONCE A DAY
     Route: 048
     Dates: start: 20241112, end: 20241120
  9. PHENOBARBITAL [Concomitant]
     Active Substance: PHENOBARBITAL
     Indication: Temporal lobe epilepsy
     Dosage: 50 MILLIGRAM, ONCE A DAY
     Route: 048
     Dates: start: 2024, end: 20241117
  10. ALLOPURINOL [Concomitant]
     Active Substance: ALLOPURINOL
     Indication: Prophylaxis
     Dosage: 300 MILLIGRAM, ONCE A DAY
     Route: 048
     Dates: start: 20241111
  11. SODIUM BICARBONATE [Concomitant]
     Active Substance: SODIUM BICARBONATE
     Indication: Prophylaxis
     Dosage: 500 MILLILITER, ONCE A DAY
     Route: 042
     Dates: start: 20241114, end: 20241120
  12. SODIUM CHLORIDE [Concomitant]
     Active Substance: SODIUM CHLORIDE
     Indication: Prophylaxis
     Dosage: 500 MILLILITER, ONCE A DAY
     Route: 042
     Dates: start: 20241114, end: 20241120
  13. ZOFRAN [Concomitant]
     Active Substance: ONDANSETRON HYDROCHLORIDE
     Indication: Prophylaxis of nausea and vomiting
     Dosage: 8 MILLIGRAM, ONCE A DAY
     Route: 048
     Dates: start: 20241114, end: 20241120

REACTIONS (3)
  - Intestinal obstruction [Not Recovered/Not Resolved]
  - Pyrexia [Unknown]
  - Abdominal pain [Unknown]

NARRATIVE: CASE EVENT DATE: 20240101
